FAERS Safety Report 8171397-4 (Version None)
Quarter: 2012Q1

REPORT INFORMATION
  Report Type: 
  Country: None (occurrence: None)
  Receive Date: 20120228
  Receipt Date: 20120222
  Transmission Date: 20120608
  Serious: Yes (Hospitalization)
  Sender: FDA-Public Use
  Company Number: DE-ABBOTT-12P-062-0907555-00

PATIENT
  Sex: Male
  Weight: 74.5 kg

DRUGS (1)
  1. ZEMPLAR [Suspect]
     Indication: HYPOPARATHYROIDISM SECONDARY

REACTIONS (2)
  - THYROIDECTOMY [None]
  - PARATHYROIDECTOMY [None]
